FAERS Safety Report 12609848 (Version 1)
Quarter: 2016Q3

REPORT INFORMATION
  Report Type: Spontaneous
  Country: US (occurrence: None)
  Receive Date: 20160729
  Receipt Date: 20160729
  Transmission Date: 20161109
  Serious: No
  Sender: FDA-Public Use
  Company Number: None

PATIENT
  Age: 20 Year
  Sex: Female

DRUGS (2)
  1. CLOZAPINE 100MG [Suspect]
     Active Substance: CLOZAPINE
     Indication: AFFECTIVE DISORDER
     Route: 048
     Dates: start: 20160518, end: 20160617
  2. CLOZAPINE 200MG [Suspect]
     Active Substance: CLOZAPINE
     Indication: AFFECTIVE DISORDER
     Route: 048
     Dates: start: 20160518, end: 20160617

REACTIONS (1)
  - Generalised tonic-clonic seizure [None]

NARRATIVE: CASE EVENT DATE: 20160601
